FAERS Safety Report 5564652-5 (Version None)
Quarter: 2007Q4

REPORT INFORMATION
  Report Type: 
  Country: None (occurrence: None)
  Receive Date: 20071213
  Receipt Date: 20071213
  Transmission Date: 20080405
  Serious: Yes (Other)
  Sender: FDA-Public Use
  Company Number: None

PATIENT
  Age: 72 Year
  Sex: Male
  Weight: 93 kg

DRUGS (3)
  1. TAXOTERE [Suspect]
     Indication: PROSTATE CANCER
     Dosage: 166 MG (IV)
     Route: 042
     Dates: start: 20071129
  2. RAD001 2.5MG [Suspect]
     Indication: PROSTATE CANCER
     Dosage: 2.5 MG ORAL
     Route: 048
     Dates: start: 20071129
  3. BEVACIZUMAB 15MG/KG [Suspect]
     Indication: PROSTATE CANCER
     Dosage: 1395 MG (IV)
     Route: 042
     Dates: start: 20071129

REACTIONS (4)
  - ASTHENIA [None]
  - CHILLS [None]
  - FATIGUE [None]
  - FEBRILE NEUTROPENIA [None]
